FAERS Safety Report 24192848 (Version 1)
Quarter: 2024Q3

REPORT INFORMATION
  Report Type: Spontaneous
  Country: CN (occurrence: CN)
  Receive Date: 20240809
  Receipt Date: 20240809
  Transmission Date: 20241016
  Serious: Yes (Hospitalization)
  Sender: ABBVIE
  Company Number: CN-ABBVIE-5870749

PATIENT
  Age: 50 Year
  Sex: Female
  Weight: 41 kg

DRUGS (3)
  1. VENCLEXTA [Suspect]
     Active Substance: VENETOCLAX
     Indication: Acute myeloid leukaemia (in remission)
     Dosage: 4 TABLET
     Route: 048
     Dates: start: 20240718, end: 20240731
  2. AZACITIDINE [Suspect]
     Active Substance: AZACITIDINE
     Indication: Acute myeloid leukaemia
     Dosage: 100 MILLIGRAM
     Route: 041
     Dates: start: 20240720, end: 20240727
  3. TUCIDINOSTAT [Suspect]
     Active Substance: TUCIDINOSTAT
     Indication: Acute myeloid leukaemia (in remission)
     Dosage: 2 TABLET
     Route: 048
     Dates: start: 20240719, end: 20240731

REACTIONS (1)
  - Myelosuppression [Recovering/Resolving]

NARRATIVE: CASE EVENT DATE: 20240729
